FAERS Safety Report 24909915 (Version 1)
Quarter: 2025Q1

REPORT INFORMATION
  Report Type: Spontaneous
  Country: JP (occurrence: JP)
  Receive Date: 20250131
  Receipt Date: 20250131
  Transmission Date: 20250409
  Serious: Yes (Other)
  Sender: ROCHE
  Company Number: JP-CHUGAI-2025001954

PATIENT
  Age: 7 Decade

DRUGS (1)
  1. VABYSMO [Suspect]
     Active Substance: FARICIMAB-SVOA
     Indication: Retinal vein occlusion
     Route: 031

REACTIONS (2)
  - Visual acuity reduced [Not Recovered/Not Resolved]
  - Retinal exudates [Not Recovered/Not Resolved]
